FAERS Safety Report 8855707 (Version 1)
Quarter: 2012Q4

REPORT INFORMATION
  Report Type: Spontaneous
  Country: US (occurrence: None)
  Receive Date: 20121019
  Receipt Date: 20121019
  Transmission Date: 20130627
  Serious: Yes (Other)
  Sender: FDA-Public Use
  Company Number: None

PATIENT
  Age: 16 Month
  Sex: Male
  Weight: 12.25 kg

DRUGS (2)
  1. CEFDINIR [Suspect]
     Indication: EAR INFECTION
     Route: 048
     Dates: start: 20120923
  2. CEFDINIR [Suspect]
     Indication: NOSE INFECTION NOS
     Route: 048
     Dates: start: 20120923

REACTIONS (1)
  - Drug ineffective [None]
